FAERS Safety Report 9447445 (Version 1)
Quarter: 2013Q3

REPORT INFORMATION
  Report Type: Spontaneous
  Country: GB (occurrence: None)
  Receive Date: 20130805
  Receipt Date: 20130805
  Transmission Date: 20140515
  Serious: Yes (Other)
  Sender: FDA-Public Use
  Company Number: 2013AP006970

PATIENT
  Sex: 0

DRUGS (6)
  1. ZOPICLONE (ZOPICLONE) [Suspect]
     Route: 064
  2. OLANZAPINE [Suspect]
     Indication: SCHIZOPHRENIA
     Route: 064
  3. DIAZEPAM (DIAZEPAM) [Suspect]
     Route: 064
  4. OMEPRAZOLE [Suspect]
     Route: 064
  5. PREGABALIN (PREGABALIN) [Suspect]
     Indication: PAIN IN EXTREMITY
     Route: 064
  6. SUBUTEX (BUPRENORPHINE HYDROCHLORIDE) [Suspect]
     Route: 064

REACTIONS (7)
  - Congenital scoliosis [None]
  - Foetal malformation [None]
  - Single functional kidney [None]
  - Limb reduction defect [None]
  - Oesophageal atresia [None]
  - Cardiac disorder [None]
  - Maternal drugs affecting foetus [None]
